FAERS Safety Report 4331262-7 (Version None)
Quarter: 2004Q2

REPORT INFORMATION
  Report Type: 
  Country: None (occurrence: None)
  Receive Date: 20040402
  Receipt Date: 20040322
  Transmission Date: 20050107
  Serious: Yes (Death)
  Sender: FDA-Public Use
  Company Number: 001151

PATIENT
  Age: 80 Year
  Sex: Female

DRUGS (3)
  1. MEDROXYPROGESTERONE [Suspect]
     Dates: start: 19830101, end: 20021127
  2. PREMARIN [Suspect]
     Dates: start: 19830101, end: 20021127
  3. MEDROXYPROGESTERONE ACETATE [Suspect]
     Dates: start: 19960101, end: 19960101

REACTIONS (1)
  - OVARIAN CANCER [None]
